FAERS Safety Report 6217124-9 (Version None)
Quarter: 2009Q2

REPORT INFORMATION
  Report Type: 
  Country: None (occurrence: None)
  Receive Date: 20090606
  Receipt Date: 20090525
  Transmission Date: 20091009
  Serious: Yes (Other)
  Sender: FDA-Public Use
  Company Number: JP-PFIZER INC-2009219157

PATIENT
  Age: 78 Year

DRUGS (12)
  1. SUNITINIB MALATE [Suspect]
     Indication: GASTROINTESTINAL STROMAL TUMOUR
     Dosage: 37.5 MG, 1X/DAY
     Route: 048
     Dates: start: 20080825, end: 20080922
  2. MARZULENE S [Concomitant]
     Dosage: UNK
     Route: 048
  3. MYSLEE [Concomitant]
     Dosage: UNK
     Route: 048
  4. DEPAS [Concomitant]
     Dosage: UNK
     Route: 048
  5. TAKEPRON [Concomitant]
     Dosage: UNK
     Route: 048
  6. KENALOG [Concomitant]
     Dosage: UNK
     Route: 061
     Dates: start: 20080828
  7. STOMATOLOGICALS, MOUTH PREPARATIONS [Concomitant]
     Dosage: UNK
     Route: 061
     Dates: start: 20080828
  8. LOXONIN [Concomitant]
     Dosage: UNK
     Route: 048
     Dates: start: 20080828
  9. MAG-LAX [Concomitant]
     Dosage: UNK
     Route: 048
     Dates: start: 20080903
  10. LOSARTAN POTASSIUM AND HYDROCHLOROTHIAZIDE [Concomitant]
     Route: 048
     Dates: start: 20080906, end: 20080912
  11. OLMETEC [Concomitant]
     Dosage: UNK
     Route: 048
     Dates: start: 20080913
  12. FLUITRAN [Concomitant]
     Dosage: UNK
     Route: 048
     Dates: start: 20080913

REACTIONS (1)
  - PALPITATIONS [None]
